FAERS Safety Report 21916417 (Version 2)
Quarter: 2023Q1

REPORT INFORMATION
  Report Type: Spontaneous
  Country: US (occurrence: US)
  Receive Date: 20230126
  Receipt Date: 20230217
  Transmission Date: 20230418
  Serious: No
  Sender: FDA-Public Use
  Company Number: US-PFIZER INC-PV202300014371

PATIENT
  Age: 71 Year
  Sex: Female

DRUGS (6)
  1. IBRANCE [Suspect]
     Active Substance: PALBOCICLIB
     Dosage: TAKE 1 TABLET ONCE A DAY FOR 21DAYS AND OFF FOR 7 DAYS
     Route: 048
     Dates: start: 20220119
  2. ATIVAN [Concomitant]
     Active Substance: LORAZEPAM
     Dosage: UNK
  3. COLACE [Concomitant]
     Active Substance: DOCUSATE SODIUM
     Dosage: UNK
  4. FLONASE ALLERGY RELIEF [Concomitant]
     Active Substance: FLUTICASONE PROPIONATE
     Dosage: NA SP-120SP
  5. LORATADINE [Concomitant]
     Active Substance: LORATADINE
     Dosage: STRENGTH: 5/325MG
  6. OMEPRAZOLE [Concomitant]
     Active Substance: OMEPRAZOLE
     Dosage: UNK

REACTIONS (4)
  - Fatigue [Not Recovered/Not Resolved]
  - Arthralgia [Not Recovered/Not Resolved]
  - Myalgia [Not Recovered/Not Resolved]
  - Asthenia [Not Recovered/Not Resolved]
